FAERS Safety Report 7124838-5 (Version None)
Quarter: 2010Q4

REPORT INFORMATION
  Report Type: 
  Country: None (occurrence: None)
  Receive Date: 20101112
  Receipt Date: 20101029
  Transmission Date: 20110411
  Serious: Yes (Hospitalization, Other)
  Sender: FDA-Public Use
  Company Number: 8026669

PATIENT
  Sex: Female

DRUGS (8)
  1. CERTOLIZUMAB PEGOL (CERTOLIZUMAB PEGOL) [Suspect]
     Indication: RHEUMATOID ARTHRITIS
     Dosage: SEE IMAGE
     Route: 058
     Dates: start: 20030512, end: 20030929
  2. CERTOLIZUMAB PEGOL (CERTOLIZUMAB PEGOL) [Suspect]
     Indication: RHEUMATOID ARTHRITIS
     Dosage: SEE IMAGE
     Route: 058
     Dates: start: 20031027, end: 20070904
  3. CERTOLIZUMAB PEGOL (CERTOLIZUMAB PEGOL) [Suspect]
     Indication: RHEUMATOID ARTHRITIS
     Dosage: SEE IMAGE
     Route: 058
     Dates: start: 20071001
  4. METHOTREXATE [Concomitant]
  5. AMITRIPTYLINE HCL [Concomitant]
  6. CODEINE PHOSPHATE [Concomitant]
  7. WARFARIN SODIUM [Concomitant]
  8. CO-AMILOFRUSE [Concomitant]

REACTIONS (13)
  - CELLULITIS [None]
  - DEEP VEIN THROMBOSIS [None]
  - DEHYDRATION [None]
  - HEADACHE [None]
  - MALAISE [None]
  - PAIN IN EXTREMITY [None]
  - PHOTOPHOBIA [None]
  - PNEUMONIA [None]
  - PRODUCTIVE COUGH [None]
  - PURULENCE [None]
  - SPUTUM DISCOLOURED [None]
  - ULCER [None]
  - VOMITING [None]
